FAERS Safety Report 6219739-0 (Version None)
Quarter: 2009Q2

REPORT INFORMATION
  Report Type: 
  Country: None (occurrence: None)
  Receive Date: 20090609
  Receipt Date: 20090526
  Transmission Date: 20091009
  Serious: Yes (Other)
  Sender: FDA-Public Use
  Company Number: US-JNJFOC-20090303899

PATIENT
  Sex: Female
  Weight: 48.54 kg

DRUGS (4)
  1. DOXORUBICIN HCL [Suspect]
     Indication: GASTRIC CANCER
     Dosage: 5 INFUSIONS
     Route: 042
  2. HYDROMORPHONE [Concomitant]
     Indication: PAIN
     Route: 065
  3. MORPHINE [Concomitant]
     Indication: PAIN
     Route: 065
  4. LORAZEPAM [Concomitant]
     Indication: ANXIETY
     Route: 065

REACTIONS (1)
  - OVARIAN CANCER [None]
